FAERS Safety Report 4364512-1 (Version None)
Quarter: 2004Q2

REPORT INFORMATION
  Report Type: 
  Country: None (occurrence: None)
  Receive Date: 20040519
  Receipt Date: 20040506
  Transmission Date: 20050107
  Serious: Yes (Death)
  Sender: FDA-Public Use
  Company Number: 2004-BP-03518RO

PATIENT
  Sex: Male
  Weight: 90.7 kg

DRUGS (7)
  1. METHADONE HCL [Suspect]
     Dates: end: 20030221
  2. ETHANOL (ETHANOL) [Suspect]
     Dates: end: 20030221
  3. XANAX [Suspect]
  4. CITALOPRAM [Concomitant]
  5. CYCLOBENZAPRINE (CYCLOBENZAPRINE) [Concomitant]
  6. CARISOPRODOL [Concomitant]
  7. MEPROBAMATE [Concomitant]

REACTIONS (13)
  - ALCOHOL USE [None]
  - CARDIOMEGALY [None]
  - CORONARY ARTERY ATHEROSCLEROSIS [None]
  - CORONARY ARTERY OCCLUSION [None]
  - DRUG SCREEN POSITIVE [None]
  - DRUG TOXICITY [None]
  - HAEMORRHAGE [None]
  - HEPATIC STEATOSIS [None]
  - HEPATOMEGALY [None]
  - MULTIPLE DRUG OVERDOSE [None]
  - NEPHROSCLEROSIS [None]
  - PNEUMOCONIOSIS [None]
  - SKIN INJURY [None]
